FAERS Safety Report 7666667-X (Version None)
Quarter: 2011Q3

REPORT INFORMATION
  Report Type: 
  Country: None (occurrence: None)
  Receive Date: 20110806
  Receipt Date: 20110701
  Transmission Date: 20111222
  Serious: No
  Sender: FDA-Public Use
  Company Number: US-ABBOTT-11P-163-0835264-00

PATIENT
  Sex: Female
  Weight: 65.83 kg

DRUGS (8)
  1. ASPIRIN [Concomitant]
     Indication: CARDIAC DISORDER
  2. LEVOTHYROXINE SODIUM [Concomitant]
     Indication: HORMONE REPLACEMENT THERAPY
  3. AMLODIPINE [Concomitant]
     Indication: HYPERTENSION
  4. MAGNESIUM OXIDE [Concomitant]
     Indication: VITAMIN D DECREASED
  5. NIASPAN [Suspect]
     Indication: PRODUCT USED FOR UNKNOWN INDICATION
     Dosage: TOOK ONLY ONE TABLET
     Dates: start: 20110601, end: 20110601
  6. CALCIUM ACETATE [Concomitant]
     Indication: MINERAL SUPPLEMENTATION
  7. BONIVA [Concomitant]
     Indication: OSTEOPOROSIS
  8. NEXIUM [Concomitant]
     Indication: PRODUCT USED FOR UNKNOWN INDICATION

REACTIONS (4)
  - PRURITUS [None]
  - MALAISE [None]
  - FEELING HOT [None]
  - RASH [None]
